FAERS Safety Report 8951039 (Version 2)
Quarter: 2013Q1

REPORT INFORMATION
  Report Type: Spontaneous
  Country: US (occurrence: US)
  Receive Date: 20121207
  Receipt Date: 20130205
  Transmission Date: 20140127
  Serious: No
  Sender: FDA-Public Use
  Company Number: PHEH2012US023829

PATIENT
  Sex: Male

DRUGS (1)
  1. EXFORGE HCT [Suspect]

REACTIONS (1)
  - Hearing impaired [Unknown]
